FAERS Safety Report 9157138 (Version 4)
Quarter: 2013Q4

REPORT INFORMATION
  Report Type: Spontaneous
  Country: US (occurrence: US)
  Receive Date: 20130312
  Receipt Date: 20131119
  Transmission Date: 20140711
  Serious: Yes (Other)
  Sender: FDA-Public Use
  Company Number: US-PFIZER INC-2013078973

PATIENT
  Age: 56 Year
  Sex: Male
  Weight: 109 kg

DRUGS (7)
  1. XELJANZ [Suspect]
     Indication: RHEUMATOID ARTHRITIS
     Dosage: 5 MG, 2X/DAY
     Route: 048
     Dates: start: 20130124
  2. XELJANZ [Suspect]
     Dosage: 5 MG, 2X/DAY
     Route: 048
     Dates: start: 2013
  3. LISINOPRIL W/HYDROCHLOROTHIAZIDE [Concomitant]
     Dosage: UNK
  4. METHOTREXATE [Concomitant]
     Dosage: 25 MG, WEEKLY
     Route: 058
  5. TRAZODONE [Concomitant]
     Dosage: 50 MG, UNK
  6. PERCOCET [Concomitant]
     Indication: PAIN
     Dosage: UNK
  7. PREDNISONE [Concomitant]
     Dosage: 5 MG, 1X/DAY

REACTIONS (6)
  - Lower respiratory tract infection [Unknown]
  - Muscle twitching [Recovering/Resolving]
  - Muscle spasms [Recovering/Resolving]
  - Fatigue [Recovering/Resolving]
  - Insomnia [Unknown]
  - Upper respiratory tract infection [Recovered/Resolved]
